FAERS Safety Report 16426858 (Version 5)
Quarter: 2020Q1

REPORT INFORMATION
  Report Type: Spontaneous
  Country: BR (occurrence: BR)
  Receive Date: 20190613
  Receipt Date: 20200323
  Transmission Date: 20200409
  Serious: Yes (Hospitalization)
  Sender: FDA-Public Use
  Company Number: BR-SA-2019SA155422

PATIENT
  Age: 54 Year
  Sex: Male
  Weight: 74 kg

DRUGS (6)
  1. LANTUS [Suspect]
     Active Substance: INSULIN GLARGINE
     Dosage: 50 IU AT MORNING AND 16 IU AT NIGHT, BID,
     Route: 058
     Dates: start: 2014
  2. DRAMAMINE [Concomitant]
     Active Substance: DIMENHYDRINATE
     Indication: NAUSEA
     Route: 065
  3. LANTUS [Suspect]
     Active Substance: INSULIN GLARGINE
     Indication: DIABETES MELLITUS
     Dosage: 50UI IN THE MORNING AND 60UI AT NIGHT
     Route: 065
  4. METFORMIN [Concomitant]
     Active Substance: METFORMIN HYDROCHLORIDE
     Indication: DIABETES MELLITUS
     Dosage: 3 DF, QD (AFTER MEALS)
     Route: 048
  5. METFORMIN [Concomitant]
     Active Substance: METFORMIN HYDROCHLORIDE
     Indication: DIABETES MELLITUS MANAGEMENT
     Dosage: 3 (UNITS UNKNOWN) A DAY AFTER THE MEALS
     Route: 048
     Dates: start: 2014
  6. ALUMINUM HYDROXIDE [ALUMINIUM HYDROXIDE] [Concomitant]
     Active Substance: ALUMINUM HYDROXIDE
     Indication: ABDOMINAL PAIN UPPER
     Route: 065

REACTIONS (17)
  - Malaise [Unknown]
  - Blood glucose decreased [Unknown]
  - Somnolence [Recovered/Resolved]
  - Blood glucose increased [Recovered/Resolved]
  - Product dose omission [Unknown]
  - Asthenia [Recovered/Resolved]
  - Labyrinthitis [Unknown]
  - Hyperhidrosis [Unknown]
  - Visual impairment [Unknown]
  - Vomiting [Recovered/Resolved]
  - Device operational issue [Recovered/Resolved]
  - Feeling abnormal [Recovered/Resolved]
  - Diabetic neuropathy [Unknown]
  - Inappropriate schedule of product administration [Unknown]
  - Dizziness [Recovered/Resolved]
  - Nausea [Recovered/Resolved]
  - Dizziness [Recovered/Resolved]

NARRATIVE: CASE EVENT DATE: 201810
